FAERS Safety Report 26042660 (Version 2)
Quarter: 2025Q4

REPORT INFORMATION
  Report Type: Report from Study
  Country: EU (occurrence: EU)
  Receive Date: 20251113
  Receipt Date: 20251126
  Transmission Date: 20260117
  Serious: Yes (Other)
  Sender: TAKEDA
  Company Number: EU-TAKEDA-2025TUS099426

PATIENT
  Age: 29 Year
  Sex: Male

DRUGS (15)
  1. TEDUGLUTIDE [Suspect]
     Active Substance: TEDUGLUTIDE
     Indication: Short-bowel syndrome
     Dosage: 2.9 MILLIGRAM, QD
     Dates: start: 20201214
  2. TEDUGLUTIDE [Suspect]
     Active Substance: TEDUGLUTIDE
  3. TEDUGLUTIDE [Suspect]
     Active Substance: TEDUGLUTIDE
  4. TEDUGLUTIDE [Suspect]
     Active Substance: TEDUGLUTIDE
  5. ASPIRIN [Concomitant]
     Active Substance: ASPIRIN
     Indication: Thrombosis prophylaxis
     Dosage: 100 MILLIGRAM, QD
     Dates: start: 20240621
  6. CALCIFEDIOL [Concomitant]
     Active Substance: CALCIFEDIOL
     Indication: Vitamin D deficiency
     Dosage: 3 GTT DROPS, QD
     Route: 061
     Dates: start: 20240621
  7. RIFAXIMIN [Concomitant]
     Active Substance: RIFAXIMIN
     Indication: Diarrhoea
     Dosage: UNK UNK, TID
     Dates: start: 20230922
  8. SODIUM CHLORIDE [Concomitant]
     Active Substance: SODIUM CHLORIDE
     Indication: Prophylaxis
     Dosage: 500 MILLIGRAM, BID
     Dates: start: 20240620
  9. Cacit [Concomitant]
     Indication: Spinal osteoarthritis
     Dosage: 1000 MILLIGRAM, BID
     Dates: start: 20190509
  10. Citrak [Concomitant]
     Indication: Nutritional supplementation
     Dosage: UNK UNK, TID
     Dates: start: 20190912
  11. DEURSIL [Concomitant]
     Active Substance: URSODIOL
     Indication: Nephrolithiasis
     Dosage: 300 MILLIGRAM, BID
     Dates: start: 20200119
  12. Folina [Concomitant]
     Indication: Vitamin supplementation
     Dosage: UNK UNK, 2/WEEK
     Dates: start: 20220908
  13. Dobetin [Concomitant]
     Indication: Vitamin supplementation
     Dosage: UNK UNK, 1/WEEK
     Dates: start: 20220908
  14. MAGNESIUM [Concomitant]
     Active Substance: MAGNESIUM
     Indication: Mineral supplementation
     Dosage: UNK UNK, QD
     Dates: start: 20230802
  15. Multicentrum adults [Concomitant]
     Indication: Nutritional supplementation
     Dosage: UNK UNK, QD
     Dates: start: 20230921

REACTIONS (1)
  - Nephrolithiasis [Recovered/Resolved]

NARRATIVE: CASE EVENT DATE: 20250901
